FAERS Safety Report 8216852-3 (Version None)
Quarter: 2012Q1

REPORT INFORMATION
  Report Type: 
  Country: None (occurrence: None)
  Receive Date: 20120316
  Receipt Date: 20120312
  Transmission Date: 20120608
  Serious: Yes (Death, Hospitalization)
  Sender: FDA-Public Use
  Company Number: US-ASTRAZENECA-2012SE16989

PATIENT
  Age: 22462 Day
  Sex: Male

DRUGS (3)
  1. SYMBICORT [Suspect]
     Dosage: 160/4.5 UNKNOWN
     Route: 055
     Dates: start: 20120214
  2. METHADONE HCL [Concomitant]
  3. VALIUM [Concomitant]

REACTIONS (1)
  - CARDIAC ARREST [None]
